FAERS Safety Report 5925277-2 (Version None)
Quarter: 2008Q4

REPORT INFORMATION
  Report Type: 
  Country: None (occurrence: None)
  Receive Date: 20081021
  Receipt Date: 20081006
  Transmission Date: 20090506
  Serious: Yes (Other)
  Sender: FDA-Public Use
  Company Number: CA-GENENTECH-269410

PATIENT
  Sex: Female
  Weight: 64 kg

DRUGS (1)
  1. OMALIZUMAB [Suspect]
     Indication: ASTHMA
     Dosage: 150 MG, UNK
     Route: 058
     Dates: start: 20070827

REACTIONS (3)
  - FUNGAL INFECTION [None]
  - HEADACHE [None]
  - WEIGHT DECREASED [None]
